FAERS Safety Report 16982554 (Version 2)
Quarter: 2019Q4

REPORT INFORMATION
  Report Type: Spontaneous
  Country: US (occurrence: US)
  Receive Date: 20191101
  Receipt Date: 20191226
  Transmission Date: 20200122
  Serious: No
  Sender: FDA-Public Use
  Company Number: US-SHIRE-US201937258

PATIENT
  Sex: Female

DRUGS (2)
  1. ADDERALL XR [Suspect]
     Active Substance: AMPHETAMINE ASPARTATE\AMPHETAMINE SULFATE\DEXTROAMPHETAMINE SACCHARATE\DEXTROAMPHETAMINE SULFATE
     Indication: ATTENTION DEFICIT/HYPERACTIVITY DISORDER
     Dosage: 15 MILLIGRAM, UNKNOWN
     Route: 065
  2. EPHEDRINE. [Concomitant]
     Active Substance: EPHEDRINE
     Indication: HYPERSENSITIVITY

REACTIONS (3)
  - Fatigue [Unknown]
  - Drug screen positive [Unknown]
  - Pruritus [Unknown]
